FAERS Safety Report 4691590-2 (Version None)
Quarter: 2005Q2

REPORT INFORMATION
  Report Type: 
  Country: None (occurrence: None)
  Receive Date: 20050616
  Receipt Date: 20050609
  Transmission Date: 20051028
  Serious: Yes (Life-Threatening)
  Sender: FDA-Public Use
  Company Number: IE-BOEHRINGER INGELHEIM PHARMACEUTICALS, INC.-2005-UK-01041IE

PATIENT

DRUGS (1)
  1. NEVIRAPINE [Suspect]

REACTIONS (1)
  - LIVER TRANSPLANT [None]
